FAERS Safety Report 16214861 (Version 1)
Quarter: 2019Q2

REPORT INFORMATION
  Report Type: Spontaneous
  Country: US (occurrence: US)
  Receive Date: 20190314
  Receipt Date: 20190314
  Transmission Date: 20190711
  Serious: No
  Sender: FDA-Public Use
  Company Number: None

PATIENT
  Age: 47 Year
  Sex: Female
  Weight: 105.75 kg

DRUGS (15)
  1. LITHIUM. [Concomitant]
     Active Substance: LITHIUM
  2. PROVERA [Concomitant]
     Active Substance: MEDROXYPROGESTERONE ACETATE
  3. MELOXICAM. [Concomitant]
     Active Substance: MELOXICAM
  4. EXCEDRIN [Concomitant]
     Active Substance: ACETAMINOPHEN\ASPIRIN\CAFFEINE
  5. ONE-A-DAY WOMEN^S FORMULA MULTIVITAMIN [Concomitant]
  6. BUPRENORPHINE TRANSDERMAL SYSTEM 10 MCG/HOUR [Suspect]
     Active Substance: BUPRENORPHINE
     Indication: SCIATICA
     Dosage: ?          OTHER STRENGTH:MCG/HOUR;QUANTITY:1 PATCH(ES);OTHER FREQUENCY:EVERY 7 DAYS;?
     Route: 062
     Dates: start: 20190207
  7. LYRICA [Concomitant]
     Active Substance: PREGABALIN
  8. OMEGA 3 FISH OIL [Concomitant]
     Active Substance: FISH OIL\OMEGA-3 FATTY ACIDS
  9. LAMICTAL [Concomitant]
     Active Substance: LAMOTRIGINE
  10. BUTRANS [Suspect]
     Active Substance: BUPRENORPHINE
  11. ALLEGRA [Concomitant]
     Active Substance: FEXOFENADINE HYDROCHLORIDE
  12. SIMVASTATIN. [Concomitant]
     Active Substance: SIMVASTATIN
  13. ZOLOFT [Concomitant]
     Active Substance: SERTRALINE HYDROCHLORIDE
  14. RANITIDINE. [Concomitant]
     Active Substance: RANITIDINE
  15. NUCYNTA [Concomitant]
     Active Substance: TAPENTADOL HYDROCHLORIDE

REACTIONS (4)
  - Dermatitis contact [None]
  - Wrong technique in product usage process [None]
  - Application site burn [None]
  - Product substitution issue [None]

NARRATIVE: CASE EVENT DATE: 20190207
